FAERS Safety Report 5730803-2 (Version None)
Quarter: 2008Q2

REPORT INFORMATION
  Report Type: 
  Country: None (occurrence: None)
  Receive Date: 20080430
  Receipt Date: 20071207
  Transmission Date: 20081010
  Serious: No
  Sender: FDA-Public Use
  Company Number: 2007PV033040

PATIENT
  Age: 17 Year
  Sex: Female

DRUGS (12)
  1. SYMLIN [Suspect]
     Indication: TYPE 1 DIABETES MELLITUS
     Dosage: SEE IMAGE
     Route: 058
     Dates: start: 20070101, end: 20070101
  2. SYMLIN [Suspect]
     Indication: TYPE 1 DIABETES MELLITUS
     Dosage: SEE IMAGE
     Route: 058
     Dates: start: 20070101, end: 20070101
  3. SYMLIN [Suspect]
     Indication: TYPE 1 DIABETES MELLITUS
     Dosage: SEE IMAGE
     Route: 058
     Dates: start: 20070101, end: 20070101
  4. SYMLIN [Suspect]
     Indication: TYPE 1 DIABETES MELLITUS
     Dosage: SEE IMAGE
     Route: 058
     Dates: start: 20070101, end: 20070101
  5. SYMLIN [Suspect]
     Indication: TYPE 1 DIABETES MELLITUS
     Dosage: SEE IMAGE
     Route: 058
     Dates: start: 20070415, end: 20070101
  6. SYMLIN [Suspect]
     Indication: TYPE 1 DIABETES MELLITUS
     Dosage: SEE IMAGE
     Route: 058
     Dates: start: 20071101, end: 20070101
  7. SYMLIN [Suspect]
     Indication: TYPE 1 DIABETES MELLITUS
     Dosage: SEE IMAGE
     Route: 058
     Dates: start: 20070101, end: 20071101
  8. SYMLIN [Suspect]
     Indication: TYPE 1 DIABETES MELLITUS
     Dosage: SEE IMAGE
     Route: 058
     Dates: start: 20070101, end: 20071101
  9. SYMLIN [Suspect]
     Indication: TYPE 1 DIABETES MELLITUS
     Dosage: SEE IMAGE
     Route: 058
     Dates: start: 20071101, end: 20071101
  10. SYMLIN [Suspect]
     Indication: TYPE 1 DIABETES MELLITUS
     Dosage: SEE IMAGE
     Route: 058
     Dates: start: 20071120, end: 20071101
  11. NOVOLOG [Concomitant]
  12. INSULIN [Concomitant]

REACTIONS (10)
  - ASTHENIA [None]
  - BLOOD GLUCOSE INCREASED [None]
  - DIZZINESS [None]
  - FATIGUE [None]
  - HEADACHE [None]
  - HYPERGLYCAEMIA [None]
  - IRRITABILITY [None]
  - MALAISE [None]
  - NAUSEA [None]
  - VISION BLURRED [None]
